FAERS Safety Report 5908332-2 (Version None)
Quarter: 2008Q4

REPORT INFORMATION
  Report Type: 
  Country: None (occurrence: None)
  Receive Date: 20081006
  Receipt Date: 20081001
  Transmission Date: 20090506
  Serious: Yes (Death, Hospitalization)
  Sender: FDA-Public Use
  Company Number: JP-BRISTOL-MYERS SQUIBB COMPANY-14347355

PATIENT
  Age: 45 Year
  Sex: Female

DRUGS (3)
  1. TAXOL [Suspect]
     Indication: CERVIX CARCINOMA
     Dosage: STARTED ON 17JUN08;THERAPY DUR:3 DAYS
     Route: 041
     Dates: start: 20080812, end: 20080812
  2. AQUPLA [Suspect]
     Indication: CERVIX CARCINOMA
     Dosage: STARTED ON 17JUN08;THERAPY DUR:3 DAYS
     Route: 041
     Dates: start: 20080812, end: 20080812
  3. OXYCONTIN [Concomitant]
     Route: 048
     Dates: start: 20080428, end: 20080910

REACTIONS (4)
  - ANOREXIA [None]
  - NAUSEA [None]
  - TUMOUR HAEMORRHAGE [None]
  - VOMITING [None]
